FAERS Safety Report 8762273 (Version 1)
Quarter: 2012Q4

REPORT INFORMATION
  Report Type: Report from Study
  Country: US (occurrence: US)
  Receive Date: 20120830
  Receipt Date: 20120830
  Transmission Date: 20130627
  Serious: Yes (Death)
  Sender: FDA-Public Use
  Company Number: US-ROCHE-1010008

PATIENT
  Age: 57 Year
  Sex: Female
  Weight: 69.46 kg

DRUGS (1)
  1. XELODA [Suspect]
     Indication: BREAST CANCER METASTATIC
     Route: 048
     Dates: start: 20111028, end: 20120509

REACTIONS (5)
  - Death [Fatal]
  - Palpitations [Unknown]
  - Pain [Unknown]
  - Constipation [Unknown]
  - Tremor [Unknown]
